FAERS Safety Report 19099696 (Version 1)
Quarter: 2021Q2

REPORT INFORMATION
  Report Type: Spontaneous
  Country: HR (occurrence: HR)
  Receive Date: 20210407
  Receipt Date: 20210407
  Transmission Date: 20210717
  Serious: Yes (Other)
  Sender: FDA-Public Use
  Company Number: HR-IPCA LABORATORIES LIMITED-IPC-2021-HR-000838

PATIENT

DRUGS (5)
  1. HYDROXYCHLOROQUINE [Suspect]
     Active Substance: HYDROXYCHLOROQUINE
     Dosage: 200 MILLIGRAM, QOD
     Route: 065
  2. HYDROXYCHLOROQUINE [Suspect]
     Active Substance: HYDROXYCHLOROQUINE
     Indication: ANTIPHOSPHOLIPID SYNDROME
     Dosage: 200 MILLIGRAM, QD
     Route: 065
  3. WARFARIN [Suspect]
     Active Substance: WARFARIN
     Indication: DEEP VEIN THROMBOSIS
     Dosage: UNK
     Route: 065
  4. ASPIRIN. [Suspect]
     Active Substance: ASPIRIN
     Indication: ANTIPHOSPHOLIPID SYNDROME
     Dosage: 100 MILLIGRAM, QD
     Route: 065
  5. ENOXAPARIN [Suspect]
     Active Substance: ENOXAPARIN
     Indication: DEEP VEIN THROMBOSIS
     Dosage: 40 MILLIGRAM
     Route: 065

REACTIONS (2)
  - Abortion spontaneous [Unknown]
  - Maternal exposure during pregnancy [Unknown]
